FAERS Safety Report 4285985-9 (Version None)
Quarter: 2004Q1

REPORT INFORMATION
  Report Type: 
  Country: None (occurrence: None)
  Receive Date: 20040120
  Receipt Date: 20030815
  Transmission Date: 20041129
  Serious: Yes (Other)
  Sender: FDA-Public Use
  Company Number: NSADSS2002039029

PATIENT
  Age: 35 Year
  Sex: Female
  Weight: 60.3284 kg

DRUGS (1)
  1. COPPER T MODEL TCU 380A [Suspect]
     Indication: INTRA-UTERINE CONTRACEPTIVE DEVICE INSERTION
     Dosage: INTRAUTERINE
     Route: 015
     Dates: start: 20021022, end: 20021022

REACTIONS (1)
  - IUCD COMPLICATION [None]
